FAERS Safety Report 24923738 (Version 1)
Quarter: 2025Q1

REPORT INFORMATION
  Report Type: Spontaneous
  Country: US (occurrence: DE)
  Receive Date: 20250204
  Receipt Date: 20250204
  Transmission Date: 20250408
  Serious: Yes (Life-Threatening, Hospitalization, Other)
  Sender: FERRING
  Company Number: US-FERRINGPH-2006-00081FE

PATIENT

DRUGS (4)
  1. MINIRIN [Suspect]
     Active Substance: DESMOPRESSIN ACETATE
     Indication: Diabetes insipidus
     Dosage: UNK, DAILY
     Route: 045
     Dates: start: 1985
  2. GENOTROPIN [Suspect]
     Active Substance: SOMATROPIN
     Indication: Hypopituitarism
     Dosage: 0.7 MG, DAILY
     Route: 065
     Dates: start: 1998
  3. HYDROCORTISONE [Suspect]
     Active Substance: HYDROCORTISONE
     Indication: Hypopituitarism
     Dosage: 15 MG, DAILY (EVERY DAY)
     Route: 048
     Dates: start: 1985
  4. LEVOTHYROXINE SODIUM [Concomitant]
     Active Substance: LEVOTHYROXINE SODIUM
     Indication: Hypopituitarism
     Dosage: 50 UG, DAILY
     Route: 048
     Dates: start: 1985

REACTIONS (2)
  - Adrenocortical insufficiency acute [Recovered/Resolved]
  - Hyponatraemia [Recovered/Resolved]

NARRATIVE: CASE EVENT DATE: 20050702
